FAERS Safety Report 24812465 (Version 2)
Quarter: 2025Q1

REPORT INFORMATION
  Report Type: Spontaneous
  Country: TW (occurrence: TW)
  Receive Date: 20250106
  Receipt Date: 20250301
  Transmission Date: 20250408
  Serious: Yes (Death, Hospitalization)
  Sender: JOHNSON AND JOHNSON
  Company Number: TW-JNJFOC-20241273495

PATIENT
  Age: 79 Year
  Sex: Male

DRUGS (14)
  1. ERLEADA [Suspect]
     Active Substance: APALUTAMIDE
     Indication: Prostate cancer
     Route: 048
     Dates: start: 202411
  2. DEGARELIX [Concomitant]
     Active Substance: DEGARELIX
     Route: 058
     Dates: start: 20241025
  3. DEGARELIX [Concomitant]
     Active Substance: DEGARELIX
     Route: 058
     Dates: start: 20241122
  4. DEGARELIX [Concomitant]
     Active Substance: DEGARELIX
     Route: 058
     Dates: start: 20241008
  5. NOREPINEPHRINE [Concomitant]
     Active Substance: NOREPINEPHRINE
     Indication: Hypertension
     Route: 042
  6. EPINEPHRINE [Concomitant]
     Active Substance: EPINEPHRINE
     Indication: Hypotension
  7. WATER FOR INJECTION [Concomitant]
     Active Substance: WATER
  8. MANNITOL [Concomitant]
     Active Substance: MANNITOL
  9. MAGNESIUM STEARATE [Concomitant]
     Active Substance: MAGNESIUM STEARATE
  10. CELLULOSE, MICROCRYSTALLINE [Concomitant]
     Active Substance: CELLULOSE, MICROCRYSTALLINE
  11. CARBOXYMETHYLCELLULOSE SODIUM [Concomitant]
     Active Substance: CARBOXYMETHYLCELLULOSE SODIUM
  12. COLLOIDAL ANHYDROUS SILICA [Concomitant]
  13. HYPROMELLOSES [Concomitant]
     Active Substance: HYPROMELLOSES
  14. ELOCON [Concomitant]
     Active Substance: MOMETASONE FUROATE

REACTIONS (4)
  - Death [Fatal]
  - Stevens-Johnson syndrome [Not Recovered/Not Resolved]
  - Pneumonia [Not Recovered/Not Resolved]
  - Somnolence [Not Recovered/Not Resolved]

NARRATIVE: CASE EVENT DATE: 20241220
